FAERS Safety Report 11793524 (Version 1)
Quarter: 2015Q4

REPORT INFORMATION
  Report Type: Spontaneous
  Country: US (occurrence: US)
  Receive Date: 20151202
  Receipt Date: 20151202
  Transmission Date: 20160305
  Serious: Yes (Hospitalization, Other)
  Sender: FDA-Public Use
  Company Number: US-IROKO PHARMACEUTICALS LLC-US-I09001-14-00229

PATIENT
  Sex: Male

DRUGS (4)
  1. HYDROCODONE [Concomitant]
     Active Substance: HYDROCODONE
     Indication: BACK PAIN
     Route: 048
     Dates: start: 20141029, end: 20141103
  2. ZORVOLEX [Suspect]
     Active Substance: DICLOFENAC
     Indication: BACK PAIN
     Route: 048
     Dates: start: 20141029, end: 20141102
  3. VITAMINS [Concomitant]
     Active Substance: VITAMINS
     Indication: PRODUCT USED FOR UNKNOWN INDICATION
     Route: 065
  4. PREDNISONE. [Concomitant]
     Active Substance: PREDNISONE
     Indication: SARCOIDOSIS
     Route: 048

REACTIONS (1)
  - Hepatitis cholestatic [Recovered/Resolved]

NARRATIVE: CASE EVENT DATE: 2014
